FAERS Safety Report 4984374-9 (Version None)
Quarter: 2006Q2

REPORT INFORMATION
  Report Type: 
  Country: None (occurrence: None)
  Receive Date: 20060427
  Receipt Date: 20060124
  Transmission Date: 20061013
  Serious: No
  Sender: FDA-Public Use
  Company Number: US-BRISTOL-MYERS SQUIBB COMPANY-13258520

PATIENT
  Sex: Male

DRUGS (12)
  1. CYTOXAN [Suspect]
  2. NORCO [Concomitant]
  3. KLOR-CON [Concomitant]
  4. LANTUS [Concomitant]
  5. COREG [Concomitant]
  6. LASIX [Concomitant]
  7. SINGULAIR [Concomitant]
  8. MEXILETINE HYDROCHLORIDE [Concomitant]
  9. DIGITEK [Concomitant]
  10. LISINOPRIL [Concomitant]
  11. NIASPAN [Concomitant]
  12. HUMALOG [Concomitant]

REACTIONS (1)
  - AGEUSIA [None]
